FAERS Safety Report 16036071 (Version 1)
Quarter: 2019Q1

REPORT INFORMATION
  Report Type: Spontaneous
  Country: None (occurrence: US)
  Receive Date: 20190305
  Receipt Date: 20190305
  Transmission Date: 20190418
  Serious: No
  Sender: FDA-Public Use
  Company Number: US-OXFORD PHARMACEUTICALS, LLC-2018OXF01251

PATIENT
  Sex: Female

DRUGS (1)
  1. METHOCARBAMOL. [Suspect]
     Active Substance: METHOCARBAMOL
     Dosage: UNK, UNKNOWN
     Route: 065

REACTIONS (3)
  - Swollen tongue [Unknown]
  - Paraesthesia oral [Unknown]
  - Pharyngeal oedema [Unknown]
